FAERS Safety Report 13101369 (Version 2)
Quarter: 2017Q1

REPORT INFORMATION
  Report Type: Spontaneous
  Country: CR (occurrence: CR)
  Receive Date: 20170110
  Receipt Date: 20170127
  Transmission Date: 20170428
  Serious: Yes (Life-Threatening, Hospitalization, Other)
  Sender: FDA-Public Use
  Company Number: CR-GLAXOSMITHKLINE-CR2016GSK191487

PATIENT
  Age: 19 Year
  Sex: Female

DRUGS (8)
  1. LORATADINE. [Concomitant]
     Active Substance: LORATADINE
     Indication: PRODUCT USED FOR UNKNOWN INDICATION
     Dosage: UNK
  2. MESYGINA [Concomitant]
  3. PREDNISOLONE. [Concomitant]
     Active Substance: PREDNISOLONE
     Indication: PRODUCT USED FOR UNKNOWN INDICATION
     Dosage: UNK
  4. PAXIL CR [Suspect]
     Active Substance: PAROXETINE HYDROCHLORIDE
     Indication: ANXIETY DISORDER
     Dosage: 12.5 MG, QD
     Route: 048
  5. CHLORPHENIRAMINE. [Concomitant]
     Active Substance: CHLORPHENIRAMINE
     Indication: PRODUCT USED FOR UNKNOWN INDICATION
     Dosage: UNK
  6. PAXIL CR [Suspect]
     Active Substance: PAROXETINE HYDROCHLORIDE
     Indication: DISTURBANCE IN ATTENTION
  7. LAMICTAL [Suspect]
     Active Substance: LAMOTRIGINE
     Indication: ANXIETY DISORDER
     Dosage: 50 MG, QD
     Route: 048
     Dates: start: 20161207, end: 20161217
  8. LAMICTAL [Suspect]
     Active Substance: LAMOTRIGINE
     Indication: DISTURBANCE IN ATTENTION

REACTIONS (15)
  - Erythema [Recovered/Resolved]
  - Pyrexia [Recovered/Resolved]
  - Weight decreased [Recovered/Resolved]
  - Hypersensitivity [Unknown]
  - Pruritus [Recovered/Resolved]
  - Dysphagia [Recovered/Resolved]
  - Vision blurred [Recovered/Resolved]
  - Conjunctivitis [Unknown]
  - Visual impairment [Recovered/Resolved]
  - Lip disorder [Recovered/Resolved]
  - Intentional product misuse [Recovered/Resolved]
  - Rash papular [Recovering/Resolving]
  - Mobility decreased [Recovered/Resolved]
  - Fatigue [Recovered/Resolved]
  - Stevens-Johnson syndrome [Recovered/Resolved]

NARRATIVE: CASE EVENT DATE: 20161217
